FAERS Safety Report 13075867 (Version 1)
Quarter: 2016Q4

REPORT INFORMATION
  Report Type: Spontaneous
  Country: US (occurrence: US)
  Receive Date: 20161229
  Receipt Date: 20161229
  Transmission Date: 20170207
  Serious: Yes (Disabling)
  Sender: FDA-Public Use
  Company Number: None

PATIENT
  Age: 51 Year
  Sex: Male
  Weight: 99.45 kg

DRUGS (3)
  1. ROSUVASTATIN TABS 10MG ACTAVIS [Suspect]
     Active Substance: ROSUVASTATIN
     Indication: HYPERLIPIDAEMIA
     Dosage: ?          QUANTITY:1 TABLET(S);?
     Route: 048
     Dates: start: 20160827, end: 20161125
  2. LOSARTAN. [Concomitant]
     Active Substance: LOSARTAN
  3. ZYRTEC [Concomitant]
     Active Substance: CETIRIZINE HYDROCHLORIDE

REACTIONS (2)
  - Tinnitus [None]
  - Product substitution issue [None]

NARRATIVE: CASE EVENT DATE: 20160902
